FAERS Safety Report 7544568-5 (Version None)
Quarter: 2011Q2

REPORT INFORMATION
  Report Type: 
  Country: None (occurrence: None)
  Receive Date: 20110613
  Receipt Date: 20110603
  Transmission Date: 20111010
  Serious: Yes (Death, Hospitalization, Other)
  Sender: FDA-Public Use
  Company Number: US-AMGEN-USACT2011028764

PATIENT
  Age: 93 Year
  Sex: Male
  Weight: 57.2 kg

DRUGS (21)
  1. ZOCOR [Concomitant]
     Dosage: 40 MG, QD
     Route: 048
     Dates: start: 20100830
  2. ASPIRIN [Concomitant]
     Dosage: 325 MG, QD
     Dates: start: 20090521
  3. NITROSTAT [Concomitant]
     Dosage: 0.4 MG, PRN
     Route: 060
     Dates: start: 20110407
  4. MAALOX [Concomitant]
     Dosage: 30 ML, PRN
     Route: 048
     Dates: start: 20110329
  5. PLAVIX [Concomitant]
     Dosage: 75 MG, QD
     Route: 048
     Dates: start: 20110208
  6. PLACEBO [Suspect]
     Indication: CARDIAC FAILURE
     Dates: start: 20091006
  7. ALBUTEROL SULFATE AUTOHALER [Concomitant]
     Dosage: UNK UNK, PRN
     Dates: start: 20110401
  8. ATROVENT [Concomitant]
     Dosage: 2.5 ML, QID
     Dates: start: 20110401
  9. RESTORIL [Concomitant]
     Dosage: 7.5 MG, PRN
     Route: 048
     Dates: start: 20110329
  10. COLACE [Concomitant]
     Dosage: 100 MG, PRN
     Dates: start: 20110329
  11. DIOVAN [Concomitant]
     Dosage: 0.5 MG, QD
     Route: 048
     Dates: start: 20110321
  12. COREG [Concomitant]
     Dosage: 6.25 MG, BID
     Route: 048
     Dates: start: 20110321
  13. SYNTHROID [Concomitant]
     Dosage: 75 A?G, QD
     Route: 048
     Dates: start: 20110224
  14. IMDUR [Concomitant]
     Dosage: 30 MG, BID
     Route: 048
     Dates: start: 20110103
  15. METOLAZONE [Concomitant]
     Dosage: UNK UNK, PRN
     Dates: start: 20110412
  16. FLOMAX [Concomitant]
     Dosage: 0.4 MG, QD
     Route: 048
     Dates: start: 20110329
  17. ZYLOPRIM [Concomitant]
     Dosage: 100 MG, QD
     Route: 048
     Dates: start: 20110224
  18. PEPCID [Concomitant]
     Dosage: 20 MG, QD
     Dates: start: 20110510
  19. LASIX [Concomitant]
     Dosage: 20 MG, BID
     Dates: start: 20110502
  20. BLINDED DARBEPOETIN ALFA [Suspect]
     Indication: CARDIAC FAILURE
     Dates: start: 20091006
  21. TYLENOL-500 [Concomitant]
     Dosage: 325 MG, PRN
     Dates: start: 20110329

REACTIONS (2)
  - FOOT DEFORMITY [None]
  - SMALL INTESTINAL OBSTRUCTION [None]
